FAERS Safety Report 8147175-9 (Version None)
Quarter: 2012Q1

REPORT INFORMATION
  Report Type: 
  Country: None (occurrence: None)
  Receive Date: 20120218
  Receipt Date: 20110210
  Transmission Date: 20120608
  Serious: No
  Sender: FDA-Public Use
  Company Number: US-ALLERGAN-1100855US

PATIENT
  Age: 41 Year
  Sex: Female

DRUGS (8)
  1. BOTOX COSMETIC [Suspect]
     Dosage: UNK UNITS
     Route: 030
     Dates: start: 20100317, end: 20100317
  2. BOTOX COSMETIC [Suspect]
     Dosage: UNK UNITS
     Route: 030
     Dates: start: 20101208, end: 20101208
  3. BOTOX COSMETIC [Suspect]
     Dosage: 15 UNITS, UNK
     Route: 030
     Dates: start: 20090922, end: 20090922
  4. BOTOX COSMETIC [Suspect]
     Indication: PRODUCT USED FOR UNKNOWN INDICATION
     Dosage: 15 UNITS, SINGLE
     Dates: start: 20081202, end: 20081202
  5. BOTOX COSMETIC [Suspect]
     Dosage: 30 UNITS, UNK
     Route: 030
     Dates: start: 20090408, end: 20090408
  6. BOTOX COSMETIC [Suspect]
     Dosage: UNK UNITS
     Route: 030
     Dates: start: 20100914, end: 20100914
  7. BOTOX COSMETIC [Suspect]
     Dosage: 10 UNITS, SINGLE
     Route: 030
     Dates: start: 20110113, end: 20110113
  8. BOTOX COSMETIC [Suspect]
     Dosage: 30 UNITS, UNK
     Route: 030
     Dates: start: 20090720, end: 20090720

REACTIONS (2)
  - DRUG HYPERSENSITIVITY [None]
  - GINGIVITIS [None]
